FAERS Safety Report 7671936-3 (Version None)
Quarter: 2011Q3

REPORT INFORMATION
  Report Type: 
  Country: None (occurrence: None)
  Receive Date: 20110809
  Receipt Date: 20110805
  Transmission Date: 20111222
  Serious: Yes (Congenital Anomaly)
  Sender: FDA-Public Use
  Company Number: US-VIIV HEALTHCARE LIMITED-A0938937A

PATIENT
  Sex: Female
  Weight: 1.6 kg

DRUGS (4)
  1. RETROVIR [Suspect]
     Indication: ANTIRETROVIRAL THERAPY
     Dosage: 2MGKH PER DAY
     Route: 064
     Dates: start: 20110720, end: 20110720
  2. TRIZIVIR [Suspect]
     Indication: ANTIRETROVIRAL THERAPY
     Dosage: 2TAB PER DAY
     Route: 064
  3. RETROVIR [Suspect]
     Dosage: 1MGKH PER DAY
     Route: 064
     Dates: start: 20110720, end: 20110720
  4. FOLIC ACID [Concomitant]

REACTIONS (10)
  - RESPIRATORY DISTRESS [None]
  - ANAEMIA [None]
  - MATERNAL EXPOSURE DURING PREGNANCY [None]
  - ASCITES [None]
  - PLEURAL EFFUSION [None]
  - THROMBOCYTOPENIA [None]
  - PREMATURE BABY [None]
  - CARDIOMEGALY [None]
  - HYDROPS FOETALIS [None]
  - PULMONARY HYPERTENSION [None]
